FAERS Safety Report 9924522 (Version 2)
Quarter: 2014Q2

REPORT INFORMATION
  Report Type: Spontaneous
  Country: US (occurrence: US)
  Receive Date: 20140226
  Receipt Date: 20140627
  Transmission Date: 20141212
  Serious: No
  Sender: FDA-Public Use
  Company Number: US-PFIZER INC-2014049491

PATIENT
  Age: 67 Year
  Sex: Male
  Weight: 106.6 kg

DRUGS (4)
  1. BOSULIF [Suspect]
     Indication: CHRONIC MYELOID LEUKAEMIA
     Dosage: 500 MG, 1X/DAY
     Dates: start: 2013
  2. ANDROGEL PUMP [Concomitant]
     Dosage: UNK
  3. INDAPAMIDE [Concomitant]
     Dosage: UNK
  4. ZYRTEC ALLERGY [Concomitant]
     Dosage: UNK

REACTIONS (5)
  - Diarrhoea [Recovering/Resolving]
  - Nausea [Recovering/Resolving]
  - Vomiting [Recovering/Resolving]
  - Nipple swelling [Unknown]
  - Rash [Unknown]
